FAERS Safety Report 5393440-8 (Version None)
Quarter: 2007Q3

REPORT INFORMATION
  Report Type: 
  Country: None (occurrence: None)
  Receive Date: 20070723
  Receipt Date: 20060814
  Transmission Date: 20080115
  Serious: No
  Sender: FDA-Public Use
  Company Number: A0579813A

PATIENT
  Age: 67 Year

DRUGS (1)
  1. AVANDIA [Suspect]
     Indication: DRUG USE FOR UNKNOWN INDICATION
     Route: 048

REACTIONS (2)
  - GASTRIC DISORDER [None]
  - LIVER DISORDER [None]
